FAERS Safety Report 9738959 (Version 2)
Quarter: 2014Q3

REPORT INFORMATION
  Report Type: Spontaneous
  Country: MX (occurrence: MX)
  Receive Date: 20131209
  Receipt Date: 20140805
  Transmission Date: 20150326
  Serious: Yes (Hospitalization, Other)
  Sender: FDA-Public Use
  Company Number: PHHY2013MX142717

PATIENT
  Age: 60 Year
  Sex: Female

DRUGS (11)
  1. ACLASTA [Suspect]
     Active Substance: ZOLEDRONIC ACID
     Indication: OSTEOPOROSIS
     Dosage: 5 MG/100ML, ONCE A YEAR
     Route: 042
     Dates: start: 20131119
  2. BEZAFIBRATE [Concomitant]
     Active Substance: BEZAFIBRATE
     Indication: BLOOD TRIGLYCERIDES INCREASED
     Dosage: UNK UKN, UNK
  3. GLYCINE MAX [Concomitant]
     Indication: MENOPAUSE
     Dosage: UNK UKN, UNK
  4. CALCIUM [Concomitant]
     Active Substance: CALCIUM
     Indication: MENOPAUSE
     Dosage: UNK UKN, UNK
  5. METFORMIN [Concomitant]
     Active Substance: METFORMIN HYDROCHLORIDE
     Indication: DIABETES MELLITUS
     Dosage: UNK UKN, UNK
  6. VITAMIN E [Concomitant]
     Active Substance: .ALPHA.-TOCOPHEROL
     Indication: MENOPAUSE
     Dosage: UNK UKN, UNK
  7. VITAMIIN C [Concomitant]
     Indication: MENOPAUSE
     Dosage: UNK UKN, UNK
  8. VITAMIN D [Concomitant]
     Active Substance: CHOLECALCIFEROL
     Indication: OSTEOPOROSIS
     Dosage: UNK UKN, UNK
  9. CALCIUM [Concomitant]
     Active Substance: CALCIUM
     Indication: OSTEOPOROSIS
  10. VITAMIN A [Concomitant]
     Active Substance: VITAMIN A
     Indication: MENOPAUSE
     Dosage: UNK UKN, UNK
  11. MINERALS NOS [Concomitant]
     Active Substance: MINERALS
     Indication: OSTEOPOROSIS
     Dosage: UNK UKN, UNK

REACTIONS (14)
  - Tachycardia [Recovered/Resolved]
  - Skin discolouration [Recovered/Resolved]
  - Eye swelling [Recovered/Resolved]
  - Nausea [Recovered/Resolved]
  - Photophobia [Recovered/Resolved]
  - Tinnitus [Recovered/Resolved]
  - Back pain [Recovered/Resolved]
  - Abdominal pain upper [Recovered/Resolved]
  - Bone pain [Recovered/Resolved]
  - Pain [Recovered/Resolved]
  - Blood glucose increased [Recovered/Resolved]
  - Blood pressure increased [Recovered/Resolved]
  - Ocular hyperaemia [Recovered/Resolved]
  - Pallor [Recovered/Resolved]

NARRATIVE: CASE EVENT DATE: 201311
